FAERS Safety Report 15633918 (Version 4)
Quarter: 2019Q1

REPORT INFORMATION
  Report Type: Spontaneous
  Country: US (occurrence: US)
  Receive Date: 20181119
  Receipt Date: 20190321
  Transmission Date: 20190417
  Serious: Yes (Hospitalization, Other)
  Sender: FDA-Public Use
  Company Number: US-PFIZER INC-2018472144

PATIENT
  Age: 64 Year
  Sex: Female
  Weight: 61.23 kg

DRUGS (2)
  1. ACCUPRIL [Concomitant]
     Active Substance: QUINAPRIL HYDROCHLORIDE
     Indication: HYPERTENSION
     Dosage: 30 MG, 2X/DAY (IN THE MORNING AND IN THE EVENING)
     Route: 048
  2. FLUCONAZOLE. [Suspect]
     Active Substance: FLUCONAZOLE
     Indication: FUNGAL INFECTION
     Dosage: 100 MG, 1X/DAY
     Route: 048
     Dates: start: 20180917

REACTIONS (11)
  - Poor quality product administered [Unknown]
  - Malaise [Unknown]
  - Clostridium difficile colitis [Recovered/Resolved]
  - Rash [Recovering/Resolving]
  - Thermal burn [Unknown]
  - Dysuria [Unknown]
  - Drug ineffective [Not Recovered/Not Resolved]
  - Product taste abnormal [Unknown]
  - Urinary retention [Recovered/Resolved]
  - Pruritus [Unknown]
  - Urinary tract infection [Unknown]

NARRATIVE: CASE EVENT DATE: 20180917
